FAERS Safety Report 16095622 (Version 2)
Quarter: 2022Q1

REPORT INFORMATION
  Report Type: Spontaneous
  Country: CH (occurrence: CH)
  Receive Date: 20190320
  Receipt Date: 20220203
  Transmission Date: 20220423
  Serious: Yes (Hospitalization, Other)
  Sender: FDA-Public Use
  Company Number: CH-SM-2019-11591

PATIENT
  Age: 64 Year
  Sex: Male

DRUGS (25)
  1. AMOXICILLIN\CLAVULANATE POTASSIUM [Suspect]
     Active Substance: AMOXICILLIN\CLAVULANATE POTASSIUM
     Indication: Infection
     Route: 042
     Dates: start: 20181212, end: 20181218
  2. AMOXICILLIN\CLAVULANATE POTASSIUM [Suspect]
     Active Substance: AMOXICILLIN\CLAVULANATE POTASSIUM
     Indication: Infection
     Route: 042
     Dates: start: 20190104, end: 20190118
  3. MYCOBUTIN [Suspect]
     Active Substance: RIFABUTIN
     Indication: Infection
     Dosage: 150 MILLIGRAM DAILY;
     Route: 048
     Dates: start: 20190103, end: 20190118
  4. METAMIZOLE [Suspect]
     Active Substance: METAMIZOLE
     Indication: Analgesic therapy
     Dosage: IN TOTAL
     Route: 048
     Dates: start: 20181212, end: 20181212
  5. METAMIZOLE [Suspect]
     Active Substance: METAMIZOLE
     Indication: Analgesic therapy
     Route: 042
     Dates: start: 20181212, end: 20181213
  6. METAMIZOLE [Suspect]
     Active Substance: METAMIZOLE
     Indication: Analgesic therapy
     Route: 042
     Dates: start: 20181219, end: 20181220
  7. WELLBUTRIN [Concomitant]
     Active Substance: BUPROPION HYDROCHLORIDE
     Dosage: 300 MILLIGRAM DAILY;
     Route: 048
  8. REMERON [Concomitant]
     Active Substance: MIRTAZAPINE
     Dosage: 15 MILLIGRAM DAILY;
     Route: 048
  9. LYRICA [Concomitant]
     Active Substance: PREGABALIN
     Dosage: 600 MILLIGRAM DAILY;
     Route: 048
  10. OXYCONTIN [Concomitant]
     Active Substance: OXYCODONE HYDROCHLORIDE
     Dosage: 30 MILLIGRAM DAILY;
     Route: 048
  11. OXYCONTIN [Concomitant]
     Active Substance: OXYCODONE HYDROCHLORIDE
     Dosage: 60 MILLIGRAM DAILY;
     Route: 048
  12. ASPIRIN [Concomitant]
     Active Substance: ASPIRIN
     Dosage: 100 MILLIGRAM DAILY;
     Route: 048
  13. CRESTOR [Concomitant]
     Active Substance: ROSUVASTATIN CALCIUM
     Dosage: 20 MILLIGRAM DAILY;
     Route: 048
  14. VEMLIDY [Concomitant]
     Active Substance: TENOFOVIR ALAFENAMIDE FUMARATE
     Dosage: 50 MILLIGRAM DAILY;
     Route: 048
  15. TIVICAY [Concomitant]
     Active Substance: DOLUTEGRAVIR SODIUM
     Dosage: 50 MILLIGRAM DAILY;
     Route: 048
  16. PREZISTA [Concomitant]
     Active Substance: DARUNAVIR ETHANOLATE
     Dosage: 2400 MILLIGRAM DAILY;
     Route: 048
  17. NORVIR [Concomitant]
     Active Substance: RITONAVIR
     Dosage: 200 MILLIGRAM DAILY;
     Route: 048
  18. TAMSULOSIN HYDROCHLORIDE [Concomitant]
     Active Substance: TAMSULOSIN HYDROCHLORIDE
     Route: 048
  19. MAGNESIOCARD ORANGE [Concomitant]
     Dosage: 5 MILLIMOL DAILY;
     Route: 048
  20. FOLIC ACID\IRON POLYMALTOSE [Concomitant]
     Active Substance: FOLIC ACID\IRON POLYMALTOSE
     Route: 048
  21. TESTOSTERONE [Concomitant]
     Active Substance: TESTOSTERONE
     Dosage: 50 MG/5 G TRANSDERMALLY
     Route: 062
  22. ENOXAPARIN SODIUM [Concomitant]
     Active Substance: ENOXAPARIN SODIUM
     Dosage: 40 MILLIGRAM DAILY;
     Route: 058
  23. CALCIUM CARBONATE\CHOLECALCIFEROL [Concomitant]
     Active Substance: CALCIUM CARBONATE\CHOLECALCIFEROL
     Route: 048
  24. Temesta [Concomitant]
     Dosage: MAXIMUM OF 3 MG IN 24 HOURS, AS NECESSARY
     Route: 048
  25. DAFALGAN [Concomitant]
     Active Substance: ACETAMINOPHEN
     Dosage: 4 GRAM DAILY;
     Route: 048

REACTIONS (3)
  - Bicytopenia [Recovering/Resolving]
  - Agranulocytosis [Recovering/Resolving]
  - Anaemia [Recovering/Resolving]

NARRATIVE: CASE EVENT DATE: 20190118
